FAERS Safety Report 8191996-3 (Version None)
Quarter: 2012Q1

REPORT INFORMATION
  Report Type: 
  Country: None (occurrence: None)
  Receive Date: 20120307
  Receipt Date: 20120301
  Transmission Date: 20120608
  Serious: Yes (Hospitalization, Other)
  Sender: FDA-Public Use
  Company Number: PHHY2011FR19905

PATIENT
  Sex: Female
  Weight: 76 kg

DRUGS (9)
  1. EVEROLIMUS [Suspect]
     Indication: RENAL CANCER METASTATIC
     Dosage: 10 MG, DAILY
     Dates: start: 20101123
  2. LEVOTHYROXINE SODIUM [Concomitant]
     Indication: HYPOTHYROIDISM
     Dosage: 62.5 MG, UNK
     Dates: start: 20091001
  3. HYPERIUM [Concomitant]
     Dosage: 1 MG, DAILY
  4. RED BLOOD CELLS, CONCENTRATED [Concomitant]
  5. DILTIAZEM HCL [Concomitant]
     Indication: HYPERTENSION
     Dosage: 300 MG, DAILY
  6. HYPERIUM [Concomitant]
     Dosage: 2 MG, UNK
  7. EVEROLIMUS [Suspect]
     Dosage: 5 MG, DAILY
     Dates: start: 20110101
  8. ASCORBIC ACID [Concomitant]
  9. LEVOTHYROXINE SODIUM [Concomitant]
     Dosage: 100 UG, UNK

REACTIONS (4)
  - ANAEMIA [None]
  - HYPOMAGNESAEMIA [None]
  - NEOPLASM MALIGNANT [None]
  - ASTHENIA [None]
